FAERS Safety Report 5706587-0 (Version None)
Quarter: 2008Q2

REPORT INFORMATION
  Report Type: 
  Country: None (occurrence: None)
  Receive Date: 20080415
  Receipt Date: 20080410
  Transmission Date: 20081010
  Serious: Yes (Life-Threatening, Hospitalization)
  Sender: FDA-Public Use
  Company Number: US-BRISTOL-MYERS SQUIBB COMPANY-14023782

PATIENT
  Age: 45 Year
  Sex: Female
  Weight: 68 kg

DRUGS (16)
  1. CETUXIMAB [Suspect]
     Indication: SQUAMOUS CELL CARCINOMA
     Dates: start: 20071211
  2. CISPLATIN [Suspect]
     Indication: SQUAMOUS CELL CARCINOMA
     Dates: start: 20071211
  3. TAXOTERE [Suspect]
     Indication: SQUAMOUS CELL CARCINOMA
     Dosage: ALSO ON 02FEB08.
     Dates: start: 20071211
  4. FLUOROURACIL [Suspect]
     Indication: SQUAMOUS CELL CARCINOMA
     Dosage: ALSO ON 22FEB08,850MG/M2.
     Dates: start: 20071211
  5. ATIVAN [Concomitant]
     Indication: NAUSEA
     Dosage: EVERY DAY AS NEEDED FOR NAUSEA. 1 DOSAGE FORM=1TABLET,1MG
     Route: 048
  6. CELEXA [Concomitant]
     Route: 048
  7. CIPRO [Concomitant]
     Dosage: 1 DOSAGE FORM= 500 MG TABLET.
     Route: 048
  8. DECADRON [Concomitant]
     Dosage: 2 DOSAGE FORM= 2 TABLET.
     Route: 048
  9. OXYCODONE HCL [Concomitant]
     Dosage: 5 MG/ML EVERY 4 HOURS AS NECESSARY FOR PRN.
     Route: 048
  10. PRILOSEC [Concomitant]
     Route: 048
  11. REGLAN [Concomitant]
     Indication: NAUSEA
     Dosage: 1 DOSAGE FORM=10 MG TABLET  4 TIMES DAILY AS NEEDED
     Route: 048
  12. ZOFRAN [Concomitant]
     Indication: NAUSEA
     Dosage: 3 TIMES AS NEEDED.
  13. ZOFRAN [Concomitant]
     Indication: VOMITING
     Dosage: 3 TIMES AS NEEDED.
  14. DIFLUCAN [Concomitant]
  15. FENTANYL [Concomitant]
  16. NYSTATIN [Concomitant]

REACTIONS (4)
  - DERMATITIS ACNEIFORM [None]
  - ENTERITIS [None]
  - FEBRILE NEUTROPENIA [None]
  - STAPHYLOCOCCAL INFECTION [None]
